FAERS Safety Report 20516415 (Version 2)
Quarter: 2022Q1

REPORT INFORMATION
  Report Type: Spontaneous
  Country: GB (occurrence: GB)
  Receive Date: 20220225
  Receipt Date: 20220320
  Transmission Date: 20220423
  Serious: Yes (Life-Threatening)
  Sender: FDA-Public Use
  Company Number: GB-MHRA-TPP29989146C4714927YC1644930162435

PATIENT
  Age: 41 Year
  Sex: Female
  Weight: 73 kg

DRUGS (4)
  1. NAPROXEN [Suspect]
     Active Substance: NAPROXEN
     Indication: Product used for unknown indication
     Dosage: 250 MILLIGRAM, TWO TIMES A DAY
     Route: 065
     Dates: start: 20220117
  2. COCODAMOL [Suspect]
     Active Substance: ACETAMINOPHEN\CODEINE PHOSPHATE
     Indication: Product used for unknown indication
     Dosage: TAKE 1 OR 2 4 TIMES/DAY WHEN REQUIRED
     Route: 065
     Dates: start: 20220117
  3. NEFOPAM [Concomitant]
     Active Substance: NEFOPAM
     Indication: Pain
     Dosage: 2 DOSAGE FORM, 3 TIMES A DAY
     Route: 065
     Dates: start: 20220215
  4. OMEPRAZOLE [Concomitant]
     Active Substance: OMEPRAZOLE
     Indication: Product used for unknown indication
     Dosage: 1 DOSAGE FORM, ONCE A DAY (1 DF, QD)
     Route: 065
     Dates: start: 20220117

REACTIONS (2)
  - Pharyngeal swelling [Recovered/Resolved]
  - Urticaria [Recovered/Resolved]

NARRATIVE: CASE EVENT DATE: 20220118
